FAERS Safety Report 9840053 (Version 1)
Quarter: 2013Q4

REPORT INFORMATION
  Report Type: Spontaneous
  Country: US (occurrence: None)
  Receive Date: 20131206
  Receipt Date: 20131206
  Transmission Date: 20140711
  Serious: Yes (Hospitalization)
  Sender: FDA-Public Use
  Company Number: 367205

PATIENT
  Age: 77 Year
  Sex: Female
  Weight: 81.6 kg

DRUGS (7)
  1. NOVOLOG MIX 70/30 FLEXPEN (INSULIN ASPART) SUSPENSION FOR INJECTION, 100U/ML [Suspect]
     Indication: TYPE 2 DIABETES MELLITUS
     Dosage: SLIDING SCALE
     Route: 058
     Dates: start: 20120502
  2. ALLOPURINOL [Concomitant]
  3. BUMEX [Concomitant]
  4. VOLTAREN [Concomitant]
  5. ESCITALOPRAM [Concomitant]
  6. GABAPENTIN [Concomitant]
  7. CRESTOR [Concomitant]

REACTIONS (2)
  - Product quality issue [None]
  - Blood glucose increased [None]
